FAERS Safety Report 9943039 (Version 2)
Quarter: 2014Q1

REPORT INFORMATION
  Report Type: Spontaneous
  Country: NZ (occurrence: NZ)
  Receive Date: 20140303
  Receipt Date: 20140303
  Transmission Date: 20141002
  Serious: Yes (Hospitalization)
  Sender: FDA-Public Use
  Company Number: NZ-ELI_LILLY_AND_COMPANY-NZ201106005321

PATIENT
  Age: 53 Year
  Sex: Female

DRUGS (4)
  1. ZYPREXA [Suspect]
     Indication: SCHIZOPHRENIA
  2. ZYPREXA [Suspect]
     Indication: ASPERGER^S DISORDER
  3. ZYPREXA RELPREVV [Suspect]
     Indication: SCHIZOPHRENIA
     Dosage: 300 MG, 2/M
     Dates: start: 2011
  4. ZYPREXA RELPREVV [Suspect]
     Indication: ASPERGER^S DISORDER
     Dosage: 405 MG, 2 WEEKLY
     Route: 030

REACTIONS (6)
  - General physical health deterioration [Unknown]
  - Hypophagia [Unknown]
  - Oligodipsia [Unknown]
  - Weight decreased [Unknown]
  - Blood potassium decreased [Unknown]
  - Prescribed overdose [Unknown]
